FAERS Safety Report 6877428-3 (Version None)
Quarter: 2010Q3

REPORT INFORMATION
  Report Type: 
  Country: None (occurrence: None)
  Receive Date: 20100727
  Receipt Date: 20100202
  Transmission Date: 20110219
  Serious: No
  Sender: FDA-Public Use
  Company Number: US-ABBOTT-10P-163-0624007-00

PATIENT
  Sex: Male
  Weight: 113.5 kg

DRUGS (1)
  1. SYNTHROID [Suspect]
     Indication: AUTOIMMUNE THYROIDITIS
     Dates: start: 19990101, end: 20100101

REACTIONS (5)
  - ARTHRALGIA [None]
  - FEELING ABNORMAL [None]
  - HYPERHIDROSIS [None]
  - MYALGIA [None]
  - PALPITATIONS [None]
